FAERS Safety Report 8012235-X (Version None)
Quarter: 2011Q4

REPORT INFORMATION
  Report Type: 
  Country: None (occurrence: None)
  Receive Date: 20111228
  Receipt Date: 20111219
  Transmission Date: 20120403
  Serious: Yes (Hospitalization)
  Sender: FDA-Public Use
  Company Number: JP-ASTRAZENECA-2011SE77899

PATIENT

DRUGS (1)
  1. NOLVADEX [Suspect]
     Route: 048

REACTIONS (1)
  - APPENDICITIS [None]
